FAERS Safety Report 13297977 (Version 1)
Quarter: 2017Q1

REPORT INFORMATION
  Report Type: Spontaneous
  Country: GB (occurrence: GB)
  Receive Date: 20170306
  Receipt Date: 20170306
  Transmission Date: 20170428
  Serious: Yes (Other)
  Sender: FDA-Public Use
  Company Number: GB-AUROBINDO-AUR-APL-2017-30229

PATIENT
  Age: 40 Year
  Sex: Female
  Weight: 116 kg

DRUGS (2)
  1. INSULIN [Concomitant]
     Active Substance: INSULIN NOS
     Indication: DIABETES MELLITUS
     Route: 065
  2. ARIPIPRAZOLE 10 MG [Suspect]
     Active Substance: ARIPIPRAZOLE
     Indication: MENTAL DISORDER
     Dosage: 10 MG, ONCE A DAY
     Route: 048

REACTIONS (2)
  - Type 1 diabetes mellitus [Unknown]
  - Condition aggravated [Unknown]

NARRATIVE: CASE EVENT DATE: 2012
